FAERS Safety Report 21939232 (Version 1)
Quarter: 2023Q1

REPORT INFORMATION
  Report Type: Report from Study
  Country: US (occurrence: US)
  Receive Date: 20230201
  Receipt Date: 20230201
  Transmission Date: 20230418
  Serious: Yes (Hospitalization)
  Sender: FDA-Public Use
  Company Number: US-EXELIXIS-CABO-22055820

PATIENT
  Sex: Male
  Weight: 68.027 kg

DRUGS (5)
  1. CABOMETYX [Suspect]
     Active Substance: CABOZANTINIB S-MALATE
     Indication: Renal cancer
     Dosage: 40 MG, QD
     Route: 048
     Dates: start: 202202
  2. OXYCODONE [Concomitant]
     Active Substance: OXYCODONE
     Dosage: UNK
  3. MORPHINE SULFATE [Concomitant]
     Active Substance: MORPHINE SULFATE
     Dosage: UNK
  4. LENVIMA [Concomitant]
     Active Substance: LENVATINIB
     Dosage: UNK
  5. EVEROLIMUS [Concomitant]
     Active Substance: EVEROLIMUS
     Dosage: UNK

REACTIONS (2)
  - Thrombosis [Unknown]
  - Dysphonia [Unknown]
